FAERS Safety Report 9440307 (Version 1)
Quarter: 2013Q3

REPORT INFORMATION
  Report Type: Spontaneous
  Country: JP (occurrence: JP)
  Receive Date: 20130805
  Receipt Date: 20130805
  Transmission Date: 20140515
  Serious: Yes (Hospitalization)
  Sender: FDA-Public Use
  Company Number: JP-ELI_LILLY_AND_COMPANY-JP201307009251

PATIENT
  Age: 68 Year
  Sex: Female

DRUGS (1)
  1. ZYPREXA [Suspect]
     Dosage: 5 MG, EACH MORNING
     Route: 048
     Dates: start: 201207

REACTIONS (7)
  - Fall [Recovered/Resolved]
  - Hypotonia [Unknown]
  - Lumbar vertebral fracture [Recovered/Resolved]
  - Wrist fracture [Recovered/Resolved]
  - Dysphagia [Unknown]
  - Vomiting [Unknown]
  - Thirst [Unknown]
